FAERS Safety Report 7028705-7 (Version None)
Quarter: 2010Q3

REPORT INFORMATION
  Report Type: 
  Country: None (occurrence: None)
  Receive Date: 20100920
  Receipt Date: 20100903
  Transmission Date: 20110219
  Serious: Yes (Hospitalization)
  Sender: FDA-Public Use
  Company Number: 2010PROUSA00047

PATIENT
  Age: 73 Year
  Sex: Male

DRUGS (3)
  1. PROVENGE [Suspect]
     Indication: PROSTATE CANCER METASTATIC
     Dosage: 250 ML, SINGLE, INTRAVENOUS ; 250 ML, SINGLE, INTRAVENOUS
     Route: 042
     Dates: start: 20100809, end: 20100809
  2. PROVENGE [Suspect]
     Indication: PROSTATE CANCER METASTATIC
     Dosage: 250 ML, SINGLE, INTRAVENOUS ; 250 ML, SINGLE, INTRAVENOUS
     Route: 042
     Dates: start: 20100823, end: 20100823
  3. PROVENGE [Suspect]

REACTIONS (1)
  - COLITIS [None]
